FAERS Safety Report 16659918 (Version 3)
Quarter: 2024Q4

REPORT INFORMATION
  Report Type: Spontaneous
  Country: HU (occurrence: HU)
  Receive Date: 20190802
  Receipt Date: 20241210
  Transmission Date: 20250115
  Serious: Yes (Death, Life-Threatening, Hospitalization, Other)
  Sender: TEVA
  Company Number: HU-EMA-DD-20190717-GANGAL_S-125108

PATIENT
  Age: 78 Year
  Sex: Male

DRUGS (17)
  1. CILASTATIN SODIUM\IMIPENEM [Suspect]
     Active Substance: CILASTATIN SODIUM\IMIPENEM
     Indication: Enterococcal infection
     Dosage: 500 MG, QID: CILASTATIN SODIUM W/IMIPENEM
     Route: 042
  2. CILASTATIN SODIUM\IMIPENEM [Suspect]
     Active Substance: CILASTATIN SODIUM\IMIPENEM
     Indication: Enterococcal infection
     Dosage: 500 MG, BID
     Route: 042
  3. METRONIDAZOLE [Suspect]
     Active Substance: METRONIDAZOLE
     Indication: Prophylaxis
     Dosage: 100 ML, TID
     Route: 042
  4. GENTAMICIN [Suspect]
     Active Substance: GENTAMICIN
     Indication: Enterobacter infection
     Dosage: 160 MG, DAILY: GENTAMYCIN /00047101/
     Route: 042
  5. SULFAMETHOXAZOLE\TRIMETHOPRIM [Suspect]
     Active Substance: SULFAMETHOXAZOLE\TRIMETHOPRIM
     Indication: Citrobacter infection
     Dosage: 400/80 MG: SULFAMETHOXAZOLE AND TRIMETHOPRIM
     Route: 048
  6. MEROPENEM [Suspect]
     Active Substance: MEROPENEM
     Indication: Pneumonia klebsiella
     Dosage: 1 G, BID
     Route: 042
  7. PIPERACILLIN AND TAZOBACTAM [Suspect]
     Active Substance: PIPERACILLIN SODIUM\TAZOBACTAM SODIUM
     Indication: Antibiotic therapy
     Dosage: 4.5 G, QID
     Route: 042
  8. FOSFOMYCIN [Suspect]
     Active Substance: FOSFOMYCIN
     Indication: Pneumonia klebsiella
     Dosage: 3 G, DAILY
     Route: 048
  9. FIDAXOMICIN [Suspect]
     Active Substance: FIDAXOMICIN
     Indication: Clostridium difficile infection
     Dosage: 200 MG, BID
     Route: 065
  10. CEFTAZIDIME [Suspect]
     Active Substance: CEFTAZIDIME
     Indication: Enterobacter infection
     Dosage: 2 G, TID
     Route: 042
  11. VANCOMYCIN [Suspect]
     Active Substance: VANCOMYCIN
     Indication: Clostridium difficile infection
     Dosage: 125 MG, Q.D
     Route: 048
  12. POVIDONE-IODINE [Concomitant]
     Active Substance: POVIDONE-IODINE
     Indication: Product used for unknown indication
     Route: 065
  13. ASCORBIC ACID [Concomitant]
     Active Substance: ASCORBIC ACID
     Indication: Product used for unknown indication
     Route: 065
  14. METHENAMINE [Concomitant]
     Active Substance: METHENAMINE
     Indication: Product used for unknown indication
     Route: 065
  15. CEFUROXIME [Suspect]
     Active Substance: CEFUROXIME
     Indication: Inflammation
     Dosage: 1.5 G, TID: CEFUROXIM /00454602/
     Route: 042
  16. AVIBACTAM SODIUM\CEFTAZIDIME [Suspect]
     Active Substance: AVIBACTAM SODIUM\CEFTAZIDIME
     Indication: Abdominal infection
     Dosage: 2.5 G, 3X/DAY
     Route: 042
     Dates: start: 20180707, end: 20180713
  17. AMOXICILLIN\CLAVULANIC ACID [Suspect]
     Active Substance: AMOXICILLIN\CLAVULANIC ACID
     Indication: Inflammation
     Dosage: 1.2 G, TID?AMOXICILLIN TRIHYDRATE W/CLAVULANIC ACID
     Route: 042

REACTIONS (16)
  - Septic shock [Fatal]
  - Chills [Unknown]
  - Respiratory failure [Unknown]
  - Melaena [Unknown]
  - Dyspnoea [Unknown]
  - Diarrhoea [Unknown]
  - Gastroenteritis [Unknown]
  - Hypoxia [Unknown]
  - Pathogen resistance [Fatal]
  - Clostridium difficile infection [Not Recovered/Not Resolved]
  - Malaise [Unknown]
  - Pyrexia [Unknown]
  - Chest pain [Unknown]
  - Anaemia [Unknown]
  - Sepsis [Fatal]
  - Product use in unapproved indication [Unknown]

NARRATIVE: CASE EVENT DATE: 20180718
